FAERS Safety Report 24548794 (Version 4)
Quarter: 2025Q2

REPORT INFORMATION
  Report Type: Spontaneous
  Country: DE (occurrence: DE)
  Receive Date: 20241025
  Receipt Date: 20250617
  Transmission Date: 20250717
  Serious: Yes (Life-Threatening, Hospitalization, Other)
  Sender: PFIZER
  Company Number: DE-002147023-NVSC2020DE331313

PATIENT
  Age: 66 Year
  Sex: Male
  Weight: 72.9 kg

DRUGS (104)
  1. RITUXIMAB [Suspect]
     Active Substance: RITUXIMAB
     Indication: Plasma cell myeloma refractory
     Route: 042
     Dates: start: 20201111
  2. RITUXIMAB [Suspect]
     Active Substance: RITUXIMAB
     Indication: B-cell lymphoma
  3. OXALIPLATIN [Suspect]
     Active Substance: OXALIPLATIN
     Indication: B-cell lymphoma refractory
     Route: 042
     Dates: start: 20201113
  4. OXALIPLATIN [Suspect]
     Active Substance: OXALIPLATIN
     Indication: B-cell lymphoma
  5. DECADRON (DEXAMETHASONE SODIUM PHOSPHATE) [Suspect]
     Active Substance: DEXAMETHASONE SODIUM PHOSPHATE
     Indication: Plasma cell myeloma refractory
     Dosage: 120 MG, QD
     Route: 048
     Dates: start: 20201113
  6. CYTARABINE [Suspect]
     Active Substance: CYTARABINE
     Indication: Plasma cell myeloma refractory
     Dosage: 7720 MG, BID
     Route: 042
     Dates: start: 20201114
  7. CYTARABINE [Suspect]
     Active Substance: CYTARABINE
     Indication: B-cell lymphoma
  8. BENDAMUSTINE [Suspect]
     Active Substance: BENDAMUSTINE
     Route: 065
  9. POLATUZUMAB VEDOTIN [Suspect]
     Active Substance: POLATUZUMAB VEDOTIN
     Route: 065
  10. FUROSEMIDE [Concomitant]
     Active Substance: FUROSEMIDE
     Indication: Oedema peripheral
     Dates: start: 20201110, end: 20201110
  11. FUROSEMIDE [Concomitant]
     Active Substance: FUROSEMIDE
     Indication: Anuria
     Route: 065
     Dates: start: 20201112, end: 20201112
  12. FUROSEMIDE [Concomitant]
     Active Substance: FUROSEMIDE
     Indication: Dyspnoea
     Dates: start: 20201114, end: 20201115
  13. FUROSEMIDE [Concomitant]
     Active Substance: FUROSEMIDE
     Dates: start: 20201116, end: 20201116
  14. FUROSEMIDE [Concomitant]
     Active Substance: FUROSEMIDE
     Dates: start: 20201120, end: 20201121
  15. FUROSEMIDE [Concomitant]
     Active Substance: FUROSEMIDE
     Dates: start: 20201122, end: 20201123
  16. FUROSEMIDE [Concomitant]
     Active Substance: FUROSEMIDE
     Dates: start: 20201206, end: 20201206
  17. FUROSEMIDE [Concomitant]
     Active Substance: FUROSEMIDE
     Dates: start: 20201207, end: 20201209
  18. FUROSEMIDE [Concomitant]
     Active Substance: FUROSEMIDE
     Dates: start: 20201211, end: 20201211
  19. FUROSEMIDE [Concomitant]
     Active Substance: FUROSEMIDE
     Dates: start: 20201214, end: 20201214
  20. PREDNISOLONE SODIUM SUCCINATE [Concomitant]
     Active Substance: PREDNISOLONE SODIUM SUCCINATE
     Indication: Premedication
     Dates: start: 20201110, end: 20201111
  21. PREDNISOLONE SODIUM SUCCINATE [Concomitant]
     Active Substance: PREDNISOLONE SODIUM SUCCINATE
     Indication: Dyspnoea
     Dates: start: 20201116, end: 20201116
  22. PREDNISOLONE SODIUM SUCCINATE [Concomitant]
     Active Substance: PREDNISOLONE SODIUM SUCCINATE
     Dates: start: 20201211, end: 20201211
  23. JONOSTERIL [CALCIUM CHLORIDE DIHYDRATE;POTASSIUM CHLORIDE;SODIUM LACTA [Concomitant]
     Indication: Prophylaxis
     Route: 065
     Dates: start: 20201112, end: 20201112
  24. JONOSTERIL [CALCIUM CHLORIDE DIHYDRATE;POTASSIUM CHLORIDE;SODIUM LACTA [Concomitant]
     Dates: start: 20201114, end: 20201114
  25. JONOSTERIL [CALCIUM CHLORIDE DIHYDRATE;POTASSIUM CHLORIDE;SODIUM LACTA [Concomitant]
     Dates: start: 20201115, end: 20201116
  26. JONOSTERIL [CALCIUM CHLORIDE DIHYDRATE;POTASSIUM CHLORIDE;SODIUM LACTA [Concomitant]
     Route: 065
     Dates: start: 20201117, end: 20201119
  27. JONOSTERIL [CALCIUM CHLORIDE DIHYDRATE;POTASSIUM CHLORIDE;SODIUM LACTA [Concomitant]
     Dates: start: 20201120, end: 20201121
  28. JONOSTERIL [CALCIUM CHLORIDE DIHYDRATE;POTASSIUM CHLORIDE;SODIUM LACTA [Concomitant]
     Dates: start: 20201124, end: 20201126
  29. JONOSTERIL [CALCIUM CHLORIDE DIHYDRATE;POTASSIUM CHLORIDE;SODIUM LACTA [Concomitant]
     Dates: start: 20201203, end: 20201203
  30. JONOSTERIL [CALCIUM CHLORIDE DIHYDRATE;POTASSIUM CHLORIDE;SODIUM LACTA [Concomitant]
     Dates: start: 20201204, end: 20201206
  31. JONOSTERIL [CALCIUM CHLORIDE DIHYDRATE;POTASSIUM CHLORIDE;SODIUM LACTA [Concomitant]
     Dates: start: 20201207, end: 20201207
  32. JONOSTERIL [CALCIUM CHLORIDE DIHYDRATE;POTASSIUM CHLORIDE;SODIUM LACTA [Concomitant]
     Dates: start: 20201208, end: 20201208
  33. JONOSTERIL [CALCIUM CHLORIDE DIHYDRATE;POTASSIUM CHLORIDE;SODIUM LACTA [Concomitant]
     Dates: start: 20201209, end: 20201210
  34. JONOSTERIL [CALCIUM CHLORIDE DIHYDRATE;POTASSIUM CHLORIDE;SODIUM LACTA [Concomitant]
     Dates: start: 20201211, end: 20201212
  35. PIPERACILLIN SODIUM\TAZOBACTAM SODIUM [Concomitant]
     Active Substance: PIPERACILLIN SODIUM\TAZOBACTAM SODIUM
     Indication: Prophylaxis
     Dates: start: 20201112, end: 20201112
  36. PIPERACILLIN SODIUM\TAZOBACTAM SODIUM [Concomitant]
     Active Substance: PIPERACILLIN SODIUM\TAZOBACTAM SODIUM
     Dates: start: 20201211, end: 20201211
  37. ALLOPURINOL [Concomitant]
     Active Substance: ALLOPURINOL
     Indication: Prophylaxis
     Dates: start: 20201113, end: 20201114
  38. ALLOPURINOL [Concomitant]
     Active Substance: ALLOPURINOL
     Dates: start: 20201118, end: 20201127
  39. ALLOPURINOL [Concomitant]
     Active Substance: ALLOPURINOL
     Dates: start: 20201128, end: 20201213
  40. EMEND [Concomitant]
     Active Substance: APREPITANT
     Indication: Prophylaxis of nausea and vomiting
     Dates: start: 20201113, end: 20201113
  41. EMEND [Concomitant]
     Active Substance: APREPITANT
     Dates: start: 20201114, end: 20201114
  42. EMEND [Concomitant]
     Active Substance: APREPITANT
     Dates: start: 20201206, end: 20201207
  43. ONDANSETRON [Concomitant]
     Active Substance: ONDANSETRON
     Indication: Prophylaxis of nausea and vomiting
     Dates: start: 20201113, end: 20201120
  44. ONDANSETRON [Concomitant]
     Active Substance: ONDANSETRON
     Indication: Prophylaxis
     Dates: start: 20201115, end: 20201115
  45. ONDANSETRON [Concomitant]
     Active Substance: ONDANSETRON
     Dates: start: 20201116, end: 20201116
  46. ONDANSETRON [Concomitant]
     Active Substance: ONDANSETRON
     Dates: start: 20201206, end: 20201208
  47. PANTOPRAZOLE SODIUM [Concomitant]
     Active Substance: PANTOPRAZOLE SODIUM
     Indication: Prophylaxis
     Dates: start: 20201113, end: 20201116
  48. PANTOPRAZOLE SODIUM [Concomitant]
     Active Substance: PANTOPRAZOLE SODIUM
     Dates: start: 20201118, end: 20201119
  49. PANTOPRAZOLE SODIUM [Concomitant]
     Active Substance: PANTOPRAZOLE SODIUM
     Dates: start: 20201120, end: 20201202
  50. DEXASIN [DEXAMETHASONE] [Concomitant]
     Indication: Prophylaxis
     Dates: start: 20201114, end: 20201114
  51. DEXASIN [DEXAMETHASONE] [Concomitant]
     Dates: start: 20201206, end: 20201207
  52. AMLODIPINE [Concomitant]
     Active Substance: AMLODIPINE BESYLATE
     Indication: Hypertension
     Dates: start: 20201118, end: 20201119
  53. AMLODIPINE [Concomitant]
     Active Substance: AMLODIPINE BESYLATE
     Dates: start: 20201120, end: 20201120
  54. AMLODIPINE [Concomitant]
     Active Substance: AMLODIPINE BESYLATE
     Dates: start: 20201121, end: 20201202
  55. AMLODIPINE [Concomitant]
     Active Substance: AMLODIPINE BESYLATE
     Dates: start: 20201211, end: 20201211
  56. CARVEDILOL [Concomitant]
     Active Substance: CARVEDILOL
     Indication: Hypertension
     Dates: start: 20201118, end: 20201118
  57. CARVEDILOL [Concomitant]
     Active Substance: CARVEDILOL
     Indication: Tachyarrhythmia
     Dates: start: 20201119, end: 20201210
  58. CARVEDILOL [Concomitant]
     Active Substance: CARVEDILOL
     Dates: start: 20201211, end: 20201211
  59. MORPHINE [Concomitant]
     Active Substance: MORPHINE
     Indication: Pain
     Dates: start: 20201118, end: 20201118
  60. MORPHINE [Concomitant]
     Active Substance: MORPHINE
     Dates: start: 20201211, end: 20201211
  61. DOXAZOSIN MESYLATE [Concomitant]
     Active Substance: DOXAZOSIN MESYLATE
     Indication: Hypertension
     Dates: start: 20201119, end: 20201202
  62. DOXAZOSIN MESYLATE [Concomitant]
     Active Substance: DOXAZOSIN MESYLATE
     Dates: start: 20201211, end: 20201211
  63. POTASSIUM CITRATE [Concomitant]
     Active Substance: POTASSIUM CITRATE
     Indication: Hypokalaemia
     Dates: start: 20201122, end: 20201123
  64. POTASSIUM CITRATE [Concomitant]
     Active Substance: POTASSIUM CITRATE
     Indication: Prophylaxis
     Dates: start: 20201124, end: 20201125
  65. POTASSIUM CITRATE [Concomitant]
     Active Substance: POTASSIUM CITRATE
     Dates: start: 20201126, end: 20201202
  66. POTASSIUM CITRATE [Concomitant]
     Active Substance: POTASSIUM CITRATE
     Dates: start: 20201206, end: 20201208
  67. POTASSIUM PHOSPHATE, MONOBASIC\SODIUM PHOSPHATE, DIBASIC, ANHYDROUS [Concomitant]
     Active Substance: POTASSIUM PHOSPHATE, MONOBASIC\SODIUM PHOSPHATE, DIBASIC, ANHYDROUS
     Indication: Hypophosphataemia
     Dates: start: 20201123, end: 20201123
  68. POTASSIUM PHOSPHATE, MONOBASIC\SODIUM PHOSPHATE, DIBASIC, ANHYDROUS [Concomitant]
     Active Substance: POTASSIUM PHOSPHATE, MONOBASIC\SODIUM PHOSPHATE, DIBASIC, ANHYDROUS
     Dates: start: 20201124, end: 20201202
  69. POTASSIUM PHOSPHATE, MONOBASIC\SODIUM PHOSPHATE, DIBASIC, ANHYDROUS [Concomitant]
     Active Substance: POTASSIUM PHOSPHATE, MONOBASIC\SODIUM PHOSPHATE, DIBASIC, ANHYDROUS
     Dates: start: 20201204, end: 20201204
  70. POTASSIUM PHOSPHATE, MONOBASIC\SODIUM PHOSPHATE, DIBASIC, ANHYDROUS [Concomitant]
     Active Substance: POTASSIUM PHOSPHATE, MONOBASIC\SODIUM PHOSPHATE, DIBASIC, ANHYDROUS
     Dates: start: 20201206, end: 20201206
  71. MAGNESIUM [Concomitant]
     Active Substance: MAGNESIUM
     Indication: Hypomagnesaemia
     Dates: start: 20201127, end: 20201202
  72. NATRIUMGLYCEROPHOSPHAT [Concomitant]
     Indication: Prophylaxis
     Dates: start: 20201203, end: 20201203
  73. NATRIUMGLYCEROPHOSPHAT [Concomitant]
     Indication: Tumour lysis syndrome
     Dates: start: 20201206, end: 20201207
  74. CIMETIDINE [Concomitant]
     Active Substance: CIMETIDINE
     Indication: Premedication
     Dates: start: 20201204, end: 20201204
  75. ACETAMINOPHEN [Concomitant]
     Active Substance: ACETAMINOPHEN
     Indication: Premedication
     Dates: start: 20201204, end: 20201204
  76. PREDNISOLONE [Concomitant]
     Active Substance: PREDNISOLONE
     Indication: Premedication
     Dates: start: 20201204, end: 20201204
  77. CALCIUM [Concomitant]
     Active Substance: CALCIUM
     Indication: Hypocalcaemia
     Dates: start: 20201206, end: 20201206
  78. CALCIUM [Concomitant]
     Active Substance: CALCIUM
     Indication: Prophylaxis
     Dates: start: 20201207, end: 20201207
  79. CALCIUM [Concomitant]
     Active Substance: CALCIUM
     Indication: Tumour lysis syndrome
     Dates: start: 20201208, end: 20201210
  80. CALCIUM [Concomitant]
     Active Substance: CALCIUM
     Dates: start: 20201211, end: 20201211
  81. DIMETHINDENE [Concomitant]
     Active Substance: DIMETHINDENE
     Indication: Premedication
     Dates: start: 20201116, end: 20201116
  82. DIMETHINDENE [Concomitant]
     Active Substance: DIMETHINDENE
     Indication: Dyspnoea
     Dates: start: 20201204, end: 20201204
  83. DIMETHINDENE [Concomitant]
     Active Substance: DIMETHINDENE
     Dates: start: 20201211, end: 20201211
  84. HYDROCHLOROTHIAZIDE [Concomitant]
     Active Substance: HYDROCHLOROTHIAZIDE
     Indication: Oedema peripheral
     Dates: start: 20201206, end: 20201211
  85. CALCIUM GLUCONATE [Concomitant]
     Active Substance: CALCIUM GLUCONATE
     Indication: Hypocalcaemia
     Dates: start: 20201208, end: 20201210
  86. CALCIUM GLUCONATE [Concomitant]
     Active Substance: CALCIUM GLUCONATE
     Indication: Tumour lysis syndrome
  87. ALBUMIN HUMAN [Concomitant]
     Active Substance: ALBUMIN HUMAN
     Indication: Prophylaxis
     Dates: start: 20201208, end: 20201210
  88. NEUPOGEN [Concomitant]
     Active Substance: FILGRASTIM
     Indication: Haematopoietic stem cell mobilisation
     Dates: start: 20201209, end: 20201210
  89. CARBIMAZOLE [Concomitant]
     Active Substance: CARBIMAZOLE
     Indication: Hyperthyroidism
     Dates: start: 20201211, end: 20201211
  90. CITIDINE [CIMETIDINE HYDROCHLORIDE] [Concomitant]
     Indication: Premedication
     Dates: start: 20201211, end: 20201211
  91. CLARITHROMYCIN [Concomitant]
     Active Substance: CLARITHROMYCIN
     Indication: Prophylaxis
     Dates: start: 20201211, end: 20201211
  92. FIBRINOGEN [Concomitant]
     Active Substance: FIBRINOGEN HUMAN
     Indication: Haemoptysis
     Dates: start: 20201211, end: 20201211
  93. SODIUM PERCHLORATE [Concomitant]
     Active Substance: SODIUM PERCHLORATE
     Indication: Hyperthyroidism
     Dates: start: 20201211, end: 20201211
  94. URAPIDIL [Concomitant]
     Active Substance: URAPIDIL
     Indication: Hypertension
     Dates: start: 20201211, end: 20201211
  95. PANTOZOL [Concomitant]
     Active Substance: PANTOPRAZOLE SODIUM
     Indication: Prophylaxis
     Dates: start: 20201211, end: 20201211
  96. MANNITOL [Concomitant]
     Active Substance: MANNITOL
     Indication: Prophylaxis
     Dates: start: 20201113, end: 20201113
  97. MANNITOL [Concomitant]
     Active Substance: MANNITOL
     Indication: Premedication
     Dates: start: 20201205, end: 20201205
  98. RASBURICASE [Concomitant]
     Active Substance: RASBURICASE
     Indication: Prophylaxis
     Dates: start: 20201114, end: 20201114
  99. COTRIM [Concomitant]
     Active Substance: SULFAMETHOXAZOLE\TRIMETHOPRIM
     Indication: Infection prophylaxis
     Dates: start: 20201116, end: 20201118
  100. DIGOXIN [Concomitant]
     Active Substance: DIGOXIN
     Indication: Tachyarrhythmia
     Dates: start: 20201116, end: 20201116
  101. METOPROLOL [Concomitant]
     Active Substance: METOPROLOL
     Indication: Tachyarrhythmia
     Dates: start: 20201116, end: 20201116
  102. NEULASTA [Concomitant]
     Active Substance: PEGFILGRASTIM
     Indication: Prophylaxis
     Dates: start: 20201116, end: 20201116
  103. BISOPROLOL [Concomitant]
     Active Substance: BISOPROLOL
     Indication: Hypertension
     Dates: start: 20201117, end: 20201117
  104. RETARON [Concomitant]
     Indication: Retinal degeneration
     Dates: start: 20201202

REACTIONS (2)
  - Tumour lysis syndrome [Recovered/Resolved]
  - Dyspnoea [Recovered/Resolved]

NARRATIVE: CASE EVENT DATE: 20201203
